FAERS Safety Report 20793766 (Version 1)
Quarter: 2022Q2

REPORT INFORMATION
  Report Type: Spontaneous
  Country: BR (occurrence: BR)
  Receive Date: 20220506
  Receipt Date: 20220506
  Transmission Date: 20220721
  Serious: Yes (Other)
  Sender: FDA-Public Use
  Company Number: BR-ABBOTT-2022A-1348367

PATIENT
  Age: 2 Year
  Sex: Male
  Weight: 15.2 kg

DRUGS (1)
  1. CLARITHROMYCIN [Suspect]
     Active Substance: CLARITHROMYCIN
     Indication: Pharyngitis
     Dosage: 5 ML 2XPER DAY FROM 12 TO 12 HOURS
     Route: 048
     Dates: start: 20220410, end: 20220416

REACTIONS (5)
  - Product preparation issue [Unknown]
  - Product taste abnormal [Unknown]
  - Vomiting [Recovering/Resolving]
  - Nausea [Unknown]
  - Pyrexia [Unknown]

NARRATIVE: CASE EVENT DATE: 20220410
